FAERS Safety Report 6696917-8 (Version None)
Quarter: 2010Q2

REPORT INFORMATION
  Report Type: 
  Country: None (occurrence: None)
  Receive Date: 20100426
  Receipt Date: 20100414
  Transmission Date: 20101027
  Serious: Yes (Disabling, Other)
  Sender: FDA-Public Use
  Company Number: PHHY2010DE23422

PATIENT

DRUGS (1)
  1. RASILEZ HCT [Suspect]
     Dosage: 300/12.5 MG
     Route: 048

REACTIONS (3)
  - CEREBELLAR INFARCTION [None]
  - CEREBRAL ISCHAEMIA [None]
  - MUSCULAR WEAKNESS [None]
